FAERS Safety Report 7776818-4 (Version None)
Quarter: 2011Q3

REPORT INFORMATION
  Report Type: 
  Country: None (occurrence: None)
  Receive Date: 20110926
  Receipt Date: 20110912
  Transmission Date: 20111222
  Serious: Yes (Other)
  Sender: FDA-Public Use
  Company Number: JP-MYLANLABS-2011S1019364

PATIENT
  Age: 86 Year
  Sex: Male
  Weight: 51 kg

DRUGS (4)
  1. NEDAPLATIN [Suspect]
     Indication: OESOPHAGEAL ADENOCARCINOMA
     Dosage: 5 MG/BODY
     Route: 042
  2. FLUOROURACIL [Suspect]
     Indication: OESOPHAGEAL ADENOCARCINOMA
     Dosage: 250 MG/BODY AS CONTINUOUS INFUSION
  3. FLUOROURACIL [Suspect]
     Dosage: 500 MG/BODY FOR 5 DAYS
  4. NEDAPLATIN [Suspect]
     Dosage: 10 MG/BODY FOR 5 DAYS

REACTIONS (4)
  - THROMBOCYTOPENIA [None]
  - PERICARDITIS [None]
  - LEUKOPENIA [None]
  - PLEURISY [None]
